FAERS Safety Report 7608376-9 (Version None)
Quarter: 2011Q3

REPORT INFORMATION
  Report Type: 
  Country: None (occurrence: None)
  Receive Date: 20110714
  Receipt Date: 20110531
  Transmission Date: 20111222
  Serious: No
  Sender: FDA-Public Use
  Company Number: US-TYCO HEALTHCARE/MALLINCKRODT-T201101165

PATIENT
  Sex: Male
  Weight: 65.306 kg

DRUGS (10)
  1. VITAMIN A [Concomitant]
     Dosage: UNK
  2. CELEBREX [Concomitant]
     Dosage: UNK
     Dates: end: 20110522
  3. MORPHINE [Suspect]
     Dosage: 30 MG, 1 TABLET QD
     Route: 048
     Dates: start: 20110525, end: 20110528
  4. MORPHINE [Suspect]
     Dosage: 30 MG, 1 TABLET QD
     Route: 048
     Dates: start: 20110523, end: 20110523
  5. MIRALAX [Concomitant]
     Indication: CONSTIPATION
     Dosage: UNK
  6. ASPIRIN [Concomitant]
     Dosage: 81 MG, UNK
  7. MS CONTIN [Concomitant]
     Dosage: 1 DOSE
     Dates: start: 20110524, end: 20110524
  8. GABAPENTIN [Concomitant]
     Dosage: UNK
  9. MORPHINE [Suspect]
     Indication: PAIN IN EXTREMITY
     Dosage: 30 MG, 1 TABLET QD
     Route: 048
     Dates: start: 20110520, end: 20110520
  10. MS CONTIN [Concomitant]
     Dosage: 1 DOSE
     Dates: start: 20110521, end: 20110521

REACTIONS (7)
  - MALAISE [None]
  - ERUCTATION [None]
  - INFLUENZA LIKE ILLNESS [None]
  - GASTROINTESTINAL SOUNDS ABNORMAL [None]
  - FEELING ABNORMAL [None]
  - ABDOMINAL DISCOMFORT [None]
  - NAUSEA [None]
